FAERS Safety Report 5476343-X (Version None)
Quarter: 2007Q3

REPORT INFORMATION
  Report Type: 
  Country: None (occurrence: None)
  Receive Date: 20070914
  Receipt Date: 20070702
  Transmission Date: 20080115
  Serious: Yes (Other)
  Sender: FDA-Public Use
  Company Number: 07-190

PATIENT
  Age: 67 Year
  Sex: Female
  Weight: 92.0802 kg

DRUGS (12)
  1. ALEVE [Suspect]
     Indication: ARTHRITIS
     Dosage: 220 MG, DAILY, ORAL
     Route: 048
     Dates: start: 20070501
  2. ASPIRIN [Suspect]
     Dosage: 81 MG, DAILY, ORAL
     Route: 048
  3. SYNTHROID [Concomitant]
  4. LASIX [Concomitant]
  5. KLOR-CON [Concomitant]
  6. DIOVAN [Concomitant]
  7. ZETIA [Concomitant]
  8. LIPITOR [Concomitant]
  9. COREG [Concomitant]
  10. AMBIEN [Concomitant]
  11. NITROGLYCERIN [Concomitant]
  12. OMEGA 3 FISH OIL SUPPLEMENT [Concomitant]

REACTIONS (1)
  - BLOOD PRESSURE INCREASED [None]
